FAERS Safety Report 20044993 (Version 1)
Quarter: 2021Q4

REPORT INFORMATION
  Report Type: Spontaneous
  Country: SG (occurrence: SG)
  Receive Date: 20211108
  Receipt Date: 20211108
  Transmission Date: 20220303
  Serious: Yes (Life-Threatening)
  Sender: FDA-Public Use
  Company Number: SG-FRESENIUS KABI-FK202112127

PATIENT
  Age: 28 Year
  Sex: Male

DRUGS (4)
  1. ESMOLOL [Suspect]
     Active Substance: ESMOLOL HYDROCHLORIDE
     Indication: Tachycardia
     Route: 065
  2. PROPYLTHIOURACIL [Concomitant]
     Active Substance: PROPYLTHIOURACIL
     Indication: Basedow^s disease
     Route: 050
  3. SODIUM IODIDE [Concomitant]
     Active Substance: SODIUM IODIDE
     Indication: Basedow^s disease
     Route: 065
  4. HYDROCORTISONE [Concomitant]
     Active Substance: HYDROCORTISONE
     Indication: Basedow^s disease
     Route: 065

REACTIONS (4)
  - Multiple organ dysfunction syndrome [Unknown]
  - Pulseless electrical activity [Recovered/Resolved]
  - Circulatory collapse [Recovering/Resolving]
  - Cardiogenic shock [Recovered/Resolved]
